FAERS Safety Report 7936101-0 (Version None)
Quarter: 2011Q4

REPORT INFORMATION
  Report Type: 
  Country: None (occurrence: None)
  Receive Date: 20111121
  Receipt Date: 20111103
  Transmission Date: 20120403
  Serious: Yes (Life-Threatening, Other)
  Sender: FDA-Public Use
  Company Number: 2011MA016164

PATIENT
  Age: 26 Year
  Sex: Male
  Weight: 50 kg

DRUGS (1)
  1. LIDOCAINE [Suspect]
     Indication: EPISTAXIS
     Dosage: 200 MG-5 ML 4%; X1;NAS
     Route: 045

REACTIONS (5)
  - RESTLESSNESS [None]
  - METABOLIC ACIDOSIS [None]
  - HYPOAESTHESIA ORAL [None]
  - TOXICITY TO VARIOUS AGENTS [None]
  - GRAND MAL CONVULSION [None]
